FAERS Safety Report 6189059-1 (Version None)
Quarter: 2009Q2

REPORT INFORMATION
  Report Type: 
  Country: None (occurrence: None)
  Receive Date: 20090513
  Receipt Date: 20090507
  Transmission Date: 20091009
  Serious: Yes (Hospitalization, Other)
  Sender: FDA-Public Use
  Company Number: US-ABBOTT-09P-163-0572185-00

PATIENT
  Sex: Female
  Weight: 47.216 kg

DRUGS (10)
  1. HUMIRA [Suspect]
     Indication: CROHN'S DISEASE
     Dosage: ONE DOSE
     Route: 058
     Dates: start: 20090326, end: 20090326
  2. HUMIRA [Suspect]
     Dosage: ONE DOSE
     Route: 058
     Dates: start: 20090409, end: 20090409
  3. HUMIRA [Suspect]
     Route: 058
     Dates: start: 20090423
  4. FLUOXETINE [Concomitant]
     Indication: DEPRESSION
  5. PENTASA [Concomitant]
     Indication: CROHN'S DISEASE
  6. ENTECORT [Concomitant]
     Indication: CROHN'S DISEASE
  7. CALCIUM [Concomitant]
     Indication: MINERAL SUPPLEMENTATION
  8. IRON [Concomitant]
     Indication: ANAEMIA
  9. ALBUTEROL [Concomitant]
     Indication: ASTHMA EXERCISE INDUCED
     Route: 055
  10. OMEPRAZOLE [Concomitant]
     Indication: CROHN'S DISEASE

REACTIONS (8)
  - ABDOMINAL PAIN UPPER [None]
  - DIZZINESS [None]
  - DRUG DOSE OMISSION [None]
  - INJECTION SITE HAEMATOMA [None]
  - INJECTION SITE IRRITATION [None]
  - LETHARGY [None]
  - NAUSEA [None]
  - PALLOR [None]
